FAERS Safety Report 5080817-3 (Version None)
Quarter: 2006Q3

REPORT INFORMATION
  Report Type: 
  Country: None (occurrence: None)
  Receive Date: 20060809
  Receipt Date: 20060721
  Transmission Date: 20061208
  Serious: Yes (Other)
  Sender: FDA-Public Use
  Company Number: MAG-2006-0000474

PATIENT
  Age: 75 Year
  Sex: Female

DRUGS (5)
  1. OXYCODONE HCL [Suspect]
     Indication: MUSCULOSKELETAL PAIN
     Dosage: 10 MG, DAILY
  2. MORPHINE SULFATE [Suspect]
     Indication: CANCER PAIN
     Dosage: 20 MG, DAILY
  3. PAXIL [Concomitant]
  4. ALPRAZOLAM [Concomitant]
  5. DEPAS (ETIZOLAM) [Concomitant]

REACTIONS (8)
  - ABNORMAL BEHAVIOUR [None]
  - AMNESIA [None]
  - DEPRESSED LEVEL OF CONSCIOUSNESS [None]
  - DEPRESSIVE SYMPTOM [None]
  - DRUG INTERACTION [None]
  - HYPERSOMNIA [None]
  - PSYCHOTIC DISORDER [None]
  - SOMNOLENCE [None]
